FAERS Safety Report 5253459-4 (Version None)
Quarter: 2007Q1

REPORT INFORMATION
  Report Type: 
  Country: None (occurrence: None)
  Receive Date: 20070301
  Receipt Date: 20070222
  Transmission Date: 20070707
  Serious: Yes (Life-Threatening, Hospitalization)
  Sender: FDA-Public Use
  Company Number: CH-ROXANE LABORATORIES, INC-2007-BP-02578RO

PATIENT
  Age: 54 Year
  Sex: Female

DRUGS (1)
  1. LITHIUM CARBONATE [Suspect]
     Indication: SCHIZOPHRENIA, DISORGANISED TYPE

REACTIONS (13)
  - BLOOD OSMOLARITY INCREASED [None]
  - BLOOD PARATHYROID HORMONE INCREASED [None]
  - DIABETES INSIPIDUS [None]
  - HYPERCALCAEMIA [None]
  - HYPERNATRAEMIA [None]
  - HYPERPARATHYROIDISM [None]
  - HYPOPHOSPHATAEMIA [None]
  - POLYDIPSIA [None]
  - POLYURIA [None]
  - RENAL FAILURE [None]
  - SOMNOLENCE [None]
  - STATUS EPILEPTICUS [None]
  - URINE OSMOLARITY DECREASED [None]
